FAERS Safety Report 12496137 (Version 2)
Quarter: 2017Q2

REPORT INFORMATION
  Report Type: Spontaneous
  Country: NL (occurrence: NL)
  Receive Date: 20160624
  Receipt Date: 20170606
  Transmission Date: 20170830
  Serious: Yes (Other)
  Sender: FDA-Public Use
  Company Number: NL-TEVA-670446ACC

PATIENT
  Age: 74 Year
  Sex: Female

DRUGS (6)
  1. PREDNISOLON [Concomitant]
     Active Substance: PREDNISOLONE
     Dosage: 7.5 MILLIGRAM DAILY; 7.5MG, 1 TIME PER DAY
     Route: 048
     Dates: start: 20140326, end: 20140701
  2. FOLIUMZUUR [Concomitant]
     Active Substance: FOLIC ACID
     Dosage: 5MG, 1 TIME PER WEEK
     Route: 048
     Dates: start: 20140409, end: 20140701
  3. CALCI CHEW D3 KAUWTABLET 500MG/400IE [Concomitant]
     Dosage: 500 MILLIGRAM DAILY; 500/MG/IU, 1 TIME PER DAY
     Route: 048
  4. METHOTREXATE. [Suspect]
     Active Substance: METHOTREXATE
     Indication: RHEUMATOID ARTHRITIS
     Dosage: 15MG, ONE PIECE PER WEEK.
     Route: 048
     Dates: start: 20140409, end: 20140701
  5. DENOSUMAB INJVLST 60MG/ML [Concomitant]
     Route: 058
     Dates: start: 20140101, end: 20150101
  6. OMEPRAZOL TABLET MGA 20MG [Concomitant]
     Dosage: 20 MILLIGRAM DAILY; 20MG, 1 TIME PER DAY
     Route: 048

REACTIONS (3)
  - Malaise [Unknown]
  - Depressed mood [Unknown]
  - Nausea [Unknown]

NARRATIVE: CASE EVENT DATE: 20140601
